FAERS Safety Report 15778970 (Version 1)
Quarter: 2019Q1

REPORT INFORMATION
  Report Type: Report from Study
  Country: CN (occurrence: CN)
  Receive Date: 20190101
  Receipt Date: 20190101
  Transmission Date: 20190417
  Serious: Yes (Other)
  Sender: FDA-Public Use
  Company Number: CN-ROCHE-2234062

PATIENT

DRUGS (1)
  1. CAPECITABINE. [Suspect]
     Active Substance: CAPECITABINE
     Indication: RECTAL CANCER
     Route: 048

REACTIONS (4)
  - Anal ulcer [Recovering/Resolving]
  - Bone marrow failure [Recovering/Resolving]
  - Diarrhoea [Recovering/Resolving]
  - Nephropathy toxic [Unknown]
